FAERS Safety Report 5808982-8 (Version None)
Quarter: 2008Q3

REPORT INFORMATION
  Report Type: 
  Country: None (occurrence: None)
  Receive Date: 20080710
  Receipt Date: 20080710
  Transmission Date: 20090109
  Serious: No
  Sender: FDA-Public Use
  Company Number: None

PATIENT
  Sex: Male
  Weight: 76.2043 kg

DRUGS (5)
  1. FLOMAX [Suspect]
     Indication: BENIGN PROSTATIC HYPERPLASIA
     Dosage: 0.4 MG ONCE DAILY PO
     Route: 048
  2. PROTONIX [Concomitant]
  3. LIPITOR [Concomitant]
  4. WELLBUTRIN XL [Concomitant]
  5. LEXAPRO [Concomitant]

REACTIONS (1)
  - DYSPNOEA EXERTIONAL [None]
